FAERS Safety Report 21662321 (Version 1)
Quarter: 2022Q4

REPORT INFORMATION
  Report Type: Spontaneous
  Country: CN (occurrence: CN)
  Receive Date: 20221130
  Receipt Date: 20221130
  Transmission Date: 20230113
  Serious: Yes (Other)
  Sender: FDA-Public Use
  Company Number: CN-002147023-NVSC2022CN263554

PATIENT
  Age: 89 Year
  Sex: Male
  Weight: 56 kg

DRUGS (4)
  1. ACLASTA [Suspect]
     Active Substance: ZOLEDRONIC ACID
     Indication: Osteoporosis
     Dosage: 50 G
     Route: 041
     Dates: start: 20220711, end: 20220711
  2. ACEGLUTAMIDE [Concomitant]
     Active Substance: ACEGLUTAMIDE
     Indication: Product used for unknown indication
     Dosage: UNK
     Route: 065
  3. PROMETHAZINE HYDROCHLORIDE [Concomitant]
     Active Substance: PROMETHAZINE HYDROCHLORIDE
     Indication: Allergy prophylaxis
     Dosage: UNK
     Route: 030
  4. DEXTROSE [Concomitant]
     Active Substance: DEXTROSE
     Indication: Supplementation therapy
     Dosage: UNK
     Route: 065

REACTIONS (3)
  - Hyperpyrexia [Recovered/Resolved]
  - Infusion related reaction [Recovering/Resolving]
  - Chills [Recovering/Resolving]

NARRATIVE: CASE EVENT DATE: 20220712
